FAERS Safety Report 11822315 (Version 10)
Quarter: 2017Q4

REPORT INFORMATION
  Report Type: Spontaneous
  Country: US (occurrence: US)
  Receive Date: 20151210
  Receipt Date: 20171018
  Transmission Date: 20180320
  Serious: Yes (Hospitalization)
  Sender: FDA-Public Use
  Company Number: US-JNJFOC-20150619236

PATIENT
  Age: 53 Year
  Sex: Male

DRUGS (10)
  1. NUVIGIL [Interacting]
     Active Substance: ARMODAFINIL
     Indication: PRODUCT USED FOR UNKNOWN INDICATION
     Route: 065
  2. PROCHLORPERAZINE. [Concomitant]
     Active Substance: PROCHLORPERAZINE
     Route: 048
     Dates: start: 20120524
  3. IMBRUVICA [Suspect]
     Active Substance: IBRUTINIB
     Indication: CHRONIC LYMPHOCYTIC LEUKAEMIA
     Route: 048
     Dates: start: 20161127, end: 2017
  4. TRAMADOL HCL [Concomitant]
     Active Substance: TRAMADOL HYDROCHLORIDE
  5. IMBRUVICA [Suspect]
     Active Substance: IBRUTINIB
     Indication: CHRONIC LYMPHOCYTIC LEUKAEMIA
     Route: 048
     Dates: start: 20141202, end: 201702
  6. ATIVAN [Concomitant]
     Active Substance: LORAZEPAM
     Route: 048
  7. ZOFRAN [Concomitant]
     Active Substance: ONDANSETRON HYDROCHLORIDE
     Dosage: 8 MG, 8 HRS PRN
     Dates: start: 20120524
  8. IMBRUVICA [Suspect]
     Active Substance: IBRUTINIB
     Indication: CHRONIC LYMPHOCYTIC LEUKAEMIA
     Route: 048
     Dates: start: 201704
  9. LYRICA [Concomitant]
     Active Substance: PREGABALIN
  10. MODAFINIL. [Suspect]
     Active Substance: MODAFINIL
     Indication: PRODUCT USED FOR UNKNOWN INDICATION
     Route: 065
     Dates: start: 2017

REACTIONS (22)
  - Gingival pain [Unknown]
  - Arthralgia [Unknown]
  - Carpal tunnel syndrome [Unknown]
  - White blood cell count decreased [Recovering/Resolving]
  - Nausea [Unknown]
  - Blood count abnormal [Not Recovered/Not Resolved]
  - Drug ineffective [Unknown]
  - Muscle atrophy [Unknown]
  - Bronchitis [Unknown]
  - Vision blurred [Unknown]
  - Muscle rupture [Recovered/Resolved]
  - Drug interaction [Unknown]
  - Muscle spasms [Recovering/Resolving]
  - Constipation [Unknown]
  - Diabetes mellitus [Unknown]
  - Dermal cyst [Unknown]
  - General physical health deterioration [Unknown]
  - Diarrhoea [Unknown]
  - Hypotonia [Unknown]
  - Lymphocyte count increased [Unknown]
  - Dizziness [Recovering/Resolving]
  - Neuropathy peripheral [Unknown]

NARRATIVE: CASE EVENT DATE: 20170209
